FAERS Safety Report 16108905 (Version 1)
Quarter: 2019Q1

REPORT INFORMATION
  Report Type: Spontaneous
  Country: US (occurrence: US)
  Receive Date: 20190323
  Receipt Date: 20190323
  Transmission Date: 20190418
  Serious: No
  Sender: FDA-Public Use
  Company Number: US-THERAPEUTICSMD-2018TMD00448

PATIENT
  Sex: Female
  Weight: 55.33 kg

DRUGS (5)
  1. IMVEXXY [Suspect]
     Active Substance: ESTRADIOL
     Indication: VULVOVAGINAL DRYNESS
     Dosage: 10 ?G, 1X/DAY (SOMETIMES IN THE EVENING, SOMETIMES IN THE MORNING)
     Route: 067
     Dates: start: 201809, end: 2018
  2. LOSARTAN POTASSIUM. [Concomitant]
     Active Substance: LOSARTAN POTASSIUM
     Dosage: 100 MG, 1X/DAY
  3. MULTIVITAMIN [Concomitant]
     Active Substance: VITAMINS
  4. IMVEXXY [Suspect]
     Active Substance: ESTRADIOL
     Dosage: 10 ?G, 2X/WEEK (SOMETIMES IN THE EVENING, SOMETIMES IN THE MORNING)
     Route: 067
     Dates: start: 2018
  5. UNSPECIFIED VITAMIN [Concomitant]
     Active Substance: VITAMINS

REACTIONS (3)
  - Product dose omission [Unknown]
  - Off label use [Not Recovered/Not Resolved]
  - Abdominal pain [Recovered/Resolved]

NARRATIVE: CASE EVENT DATE: 2018
